FAERS Safety Report 25825617 (Version 1)
Quarter: 2025Q3

REPORT INFORMATION
  Report Type: Report from Study
  Country: US (occurrence: US)
  Receive Date: 20250919
  Receipt Date: 20250919
  Transmission Date: 20251021
  Serious: Yes (Other)
  Sender: ABBVIE
  Company Number: US-ABBVIE-6466585

PATIENT
  Age: 57 Year
  Sex: Male

DRUGS (1)
  1. HUMIRA [Suspect]
     Active Substance: ADALIMUMAB
     Indication: Product used for unknown indication
     Dosage: DOSAGE: 40 MG/ML CITRATE FREE
     Route: 058

REACTIONS (3)
  - Hepatic cirrhosis [Unknown]
  - Ulcer [Unknown]
  - Back pain [Unknown]

NARRATIVE: CASE EVENT DATE: 20240101
